FAERS Safety Report 6975391-8 (Version None)
Quarter: 2010Q3

REPORT INFORMATION
  Report Type: 
  Country: None (occurrence: None)
  Receive Date: 20100910
  Receipt Date: 20090310
  Transmission Date: 20110219
  Serious: No
  Sender: FDA-Public Use
  Company Number: US-WYE-H08531709

PATIENT
  Age: 83 Year
  Sex: Female

DRUGS (10)
  1. PRISTIQ [Suspect]
     Indication: DEPRESSION
     Route: 048
     Dates: start: 20090223, end: 20090308
  2. PREMARIN [Concomitant]
  3. LIPITOR [Concomitant]
  4. MULTIPLE VITAMIN [Concomitant]
  5. NIACIN [Concomitant]
  6. LOTREL [Concomitant]
  7. THYROID [Concomitant]
  8. LOVAZA [Concomitant]
  9. ASPIRIN [Concomitant]
  10. TRICOR [Concomitant]

REACTIONS (4)
  - DIZZINESS [None]
  - DRUG WITHDRAWAL SYNDROME [None]
  - HYPERSOMNIA [None]
  - SENSORY DISTURBANCE [None]
